FAERS Safety Report 5552114-0 (Version None)
Quarter: 2007Q4

REPORT INFORMATION
  Report Type: 
  Country: None (occurrence: None)
  Receive Date: 20071212
  Receipt Date: 20071204
  Transmission Date: 20080405
  Serious: Yes (Hospitalization, Other)
  Sender: FDA-Public Use
  Company Number: PFIZER INC-2007102742

PATIENT
  Sex: Female

DRUGS (1)
  1. DEPO-MEDROL [Suspect]
     Route: 030

REACTIONS (3)
  - ANAPHYLACTIC SHOCK [None]
  - RESPIRATORY ARREST [None]
  - TREMOR [None]
